FAERS Safety Report 21344885 (Version 1)
Quarter: 2022Q3

REPORT INFORMATION
  Report Type: Spontaneous
  Country: US (occurrence: US)
  Receive Date: 20220916
  Receipt Date: 20220916
  Transmission Date: 20221026
  Serious: Yes (Death, Other)
  Sender: FDA-Public Use
  Company Number: US-BRISTOL-MYERS SQUIBB COMPANY-2022-104948

PATIENT
  Age: 91 Year
  Sex: Female
  Weight: 63.05 kg

DRUGS (1)
  1. LENALIDOMIDE [Suspect]
     Active Substance: LENALIDOMIDE
     Indication: Plasma cell myeloma
     Dosage: PO, QD X 21DS/28DS
     Route: 048
     Dates: start: 20220609, end: 20220907

REACTIONS (1)
  - Death [Fatal]

NARRATIVE: CASE EVENT DATE: 20220907
